FAERS Safety Report 10993510 (Version 1)
Quarter: 2015Q2

REPORT INFORMATION
  Report Type: Spontaneous
  Country: GB (occurrence: GB)
  Receive Date: 20150407
  Receipt Date: 20150407
  Transmission Date: 20150821
  Serious: Yes (Other)
  Sender: FDA-Public Use
  Company Number: GB-MERCK-1504GBR000192

PATIENT
  Age: 59 Year
  Sex: Female
  Weight: 85 kg

DRUGS (13)
  1. HYDROXYZINE HYDROCHLORIDE. [Suspect]
     Active Substance: HYDROXYZINE HYDROCHLORIDE
     Dosage: AT NIGHT
     Route: 048
  2. CARBOCYSTEINE [Concomitant]
     Active Substance: CARBOCYSTEINE
  3. ASPIRIN. [Concomitant]
     Active Substance: ASPIRIN
  4. ALENDRONIC ACID [Concomitant]
     Active Substance: ALENDRONIC ACID
  5. METFOREM [Concomitant]
     Active Substance: METFORMIN HYDROCHLORIDE
  6. TERBUTALINE SULFATE. [Concomitant]
     Active Substance: TERBUTALINE SULFATE
  7. CALCIUM CARBONATE. [Concomitant]
     Active Substance: CALCIUM CARBONATE
  8. LEVOTHYROXINE SODIUM. [Concomitant]
     Active Substance: LEVOTHYROXINE SODIUM
  9. ACIDEX (CALCIUM CARBONATE (+) SODIUM ALGINATE (+) SODIUM BICARBONATE) [Concomitant]
     Active Substance: CALCIUM CARBONATE\SODIUM ALGINATE\SODIUM BICARBONATE
  10. SIMVASTATIN. [Suspect]
     Active Substance: SIMVASTATIN
     Dosage: AT NIGHT
     Route: 048
  11. TIOTROPIUM BROMIDE [Concomitant]
     Active Substance: TIOTROPIUM BROMIDE
  12. TRAMADOL HYDROCHLORIDE. [Concomitant]
     Active Substance: TRAMADOL HYDROCHLORIDE
  13. SERETIDE [Concomitant]
     Active Substance: FLUTICASONE FUROATE\SALMETEROL XINAFOATE

REACTIONS (3)
  - Abdominal pain upper [Recovered/Resolved]
  - Drug interaction [Unknown]
  - Vomiting [Recovered/Resolved]
